FAERS Safety Report 24120673 (Version 2)
Quarter: 2024Q3

REPORT INFORMATION
  Report Type: Spontaneous
  Country: US (occurrence: US)
  Receive Date: 20240722
  Receipt Date: 20240725
  Transmission Date: 20241016
  Serious: No
  Sender: BIOGEN
  Company Number: US-BIOGEN-2023BI01224217

PATIENT
  Age: 24 Year
  Sex: Female

DRUGS (2)
  1. TYSABRI [Suspect]
     Active Substance: NATALIZUMAB
     Indication: Multiple sclerosis
     Route: 050
     Dates: start: 20190118, end: 20230615
  2. TYSABRI [Suspect]
     Active Substance: NATALIZUMAB
     Route: 050

REACTIONS (5)
  - Product dose omission issue [Unknown]
  - Multiple sclerosis relapse [Unknown]
  - Tremor [Unknown]
  - Multiple sclerosis [Unknown]
  - Stress [Unknown]

NARRATIVE: CASE EVENT DATE: 20230801
